FAERS Safety Report 9228508 (Version 2)
Quarter: 2013Q2

REPORT INFORMATION
  Report Type: Spontaneous
  Country: CZ (occurrence: CZ)
  Receive Date: 20130412
  Receipt Date: 20130419
  Transmission Date: 20140414
  Serious: Yes (Other)
  Sender: FDA-Public Use
  Company Number: CZ-GLAXOSMITHKLINE-B0881950A

PATIENT
  Age: 3 Year
  Sex: Female
  Weight: 11.3 kg

DRUGS (2)
  1. FLIXOTIDE [Suspect]
     Indication: LARYNGITIS
     Dosage: 2U TWICE PER DAY
     Route: 055
     Dates: start: 201201
  2. XYZAL [Concomitant]

REACTIONS (4)
  - Decreased appetite [Not Recovered/Not Resolved]
  - Choking [Unknown]
  - Vomiting [Unknown]
  - Psychomotor hyperactivity [Unknown]
